FAERS Safety Report 8124097-0 (Version None)
Quarter: 2012Q1

REPORT INFORMATION
  Report Type: 
  Country: None (occurrence: None)
  Receive Date: 20120209
  Receipt Date: 20120206
  Transmission Date: 20120608
  Serious: Yes (Hospitalization, Other)
  Sender: FDA-Public Use
  Company Number: US-PFIZER INC-2011233605

PATIENT
  Sex: Male

DRUGS (29)
  1. NEXIUM [Concomitant]
     Dosage: UNK
     Route: 042
     Dates: start: 20090312, end: 20090314
  2. ATIVAN [Concomitant]
     Indication: AGITATION
     Dosage: 2 MG, AS NEEDED
     Dates: start: 20090315, end: 20090402
  3. POLYCILLIN-N FOR INJECTION [Concomitant]
     Dosage: 2 G, UNK
     Route: 042
     Dates: start: 20090311, end: 20090312
  4. NORVASC [Concomitant]
     Dosage: 10 MG, UNK
     Route: 048
     Dates: start: 20090312, end: 20090312
  5. ONDANSETRON HCL [Concomitant]
     Dosage: 4 MG, UNK
     Dates: start: 20090315, end: 20090315
  6. BENADRYL [Concomitant]
     Indication: PRURITUS
     Dosage: 50 MG, UNK
     Route: 042
     Dates: start: 20090317, end: 20090317
  7. POTASSIUM CHLORIDE [Concomitant]
     Dosage: 60 MEQ, UNK
     Route: 042
     Dates: start: 20090318, end: 20090318
  8. COLACE [Concomitant]
     Dosage: 240 MG, UNK
     Route: 048
     Dates: start: 20090314, end: 20090402
  9. VIBRAMYCIN [Concomitant]
     Dosage: 100 MG, 2X/DAY
     Dates: start: 20090311, end: 20090312
  10. METRONIDAZOLE [Concomitant]
     Dosage: 500 MG, 2X/DAY
     Dates: start: 20090315, end: 20090321
  11. SOLU-MEDROL [Concomitant]
     Dosage: 40 MG, UNK
     Route: 042
     Dates: start: 20090317, end: 20090317
  12. DILANTIN KAPSEAL [Suspect]
     Dosage: 400MG KAPSEALS HALF STRENGTH ORALLY
     Route: 048
     Dates: start: 20090319, end: 20090321
  13. LOVENOX [Concomitant]
     Dosage: 40 MG, UNK
     Route: 058
     Dates: start: 20090311, end: 20090315
  14. ACETAMINOPHEN [Concomitant]
     Dosage: 650 MG, EVERY 6 HOURS AS NEEDED
     Route: 054
     Dates: start: 20090312, end: 20090402
  15. NEXIUM [Concomitant]
     Dosage: 40 MG, 2X/DAY
     Route: 048
     Dates: start: 20090311, end: 20090323
  16. ACETAMINOPHEN [Concomitant]
     Dosage: 650 MG, EVERY 6 HOURS AS NEEDED
     Route: 048
     Dates: start: 20090311, end: 20090317
  17. ROCEPHIN [Concomitant]
     Dosage: 2 G, 2X/DAY
     Dates: start: 20090317, end: 20090321
  18. ATROVENT [Concomitant]
     Dosage: 0.02 %, UNK
     Dates: start: 20090315, end: 20090402
  19. VANCOCIN HYDROCHLORIDE [Concomitant]
     Dosage: 1 G, 2X/DAY
     Dates: start: 20090311, end: 20090317
  20. ZOVIRAX [Concomitant]
     Dosage: 500 MG, EVERY 8 HOURS
     Dates: start: 20090312, end: 20090323
  21. APRESOLINE [Concomitant]
     Dosage: 10 MG, EVERY 6 HOURS AS NEEDED
     Route: 042
     Dates: start: 20090311, end: 20090312
  22. COLACE [Concomitant]
     Dosage: 100 MG, 2X/DAY
     Route: 048
     Dates: start: 20090311, end: 20090312
  23. MAXIPIME [Concomitant]
     Dosage: 2 G, 2X/DAY
     Dates: start: 20090311, end: 20090317
  24. CEREBYX [Concomitant]
     Dosage: 500 MG, UNK
     Dates: start: 20090312, end: 20090319
  25. TAMSULOSIN [Concomitant]
     Dosage: 0.4 MG, HALF STRENGTH UNK
     Route: 048
     Dates: start: 20090313, end: 20090402
  26. ALBUTEROL [Concomitant]
     Dosage: 2.5 MG, EVERY 8 HOURS
     Dates: start: 20090315, end: 20090402
  27. HEPARIN [Concomitant]
     Indication: PULMONARY EMBOLISM
     Dosage: 25000 IU, EVERY 8 HOURS
     Route: 058
     Dates: start: 20090315, end: 20090328
  28. BENADRYL [Concomitant]
     Dosage: 25 MG, EVERY 6 HOURS AS NEEDED
     Route: 048
     Dates: start: 20090317, end: 20090328
  29. PERIDEX [Concomitant]
     Dosage: 0.12% 10 ML, 2X/DAY
     Dates: start: 20090317, end: 20090402

REACTIONS (1)
  - STEVENS-JOHNSON SYNDROME [None]
